FAERS Safety Report 4445650-1 (Version None)
Quarter: 2004Q3

REPORT INFORMATION
  Report Type: 
  Country: None (occurrence: None)
  Receive Date: 20040902
  Receipt Date: 20040825
  Transmission Date: 20050211
  Serious: Yes (Hospitalization, Other)
  Sender: FDA-Public Use
  Company Number: ITWYE000425AUG04

PATIENT
  Age: 70 Year
  Sex: Female

DRUGS (1)
  1. TAZOCIN (PIPERACILLIN/ TAZOBACTAM, INJECTION) [Suspect]
     Indication: INFECTION
     Dosage: 12 G DAILY INTRAVENOUS
     Route: 042
     Dates: start: 20040804, end: 20040814

REACTIONS (2)
  - DISSEMINATED INTRAVASCULAR COAGULATION [None]
  - PYREXIA [None]
